FAERS Safety Report 19461173 (Version 1)
Quarter: 2021Q2

REPORT INFORMATION
  Report Type: Spontaneous
  Country: US (occurrence: US)
  Receive Date: 20210625
  Receipt Date: 20210625
  Transmission Date: 20210717
  Serious: Yes (Other)
  Sender: FDA-Public Use
  Company Number: US-HIKMA PHARMACEUTICALS USA INC.-US-H14001-21-54715

PATIENT
  Age: 51 Year
  Sex: Male

DRUGS (9)
  1. MORPHINE [Suspect]
     Active Substance: MORPHINE
     Route: 037
     Dates: start: 20180417
  2. MORPHINE [Suspect]
     Active Substance: MORPHINE
     Route: 037
     Dates: start: 20180613
  3. MORPHINE [Suspect]
     Active Substance: MORPHINE
     Route: 037
     Dates: start: 20180726
  4. MORPHINE [Suspect]
     Active Substance: MORPHINE
     Route: 037
     Dates: start: 20180726
  5. MORPHINE [Suspect]
     Active Substance: MORPHINE
     Route: 037
     Dates: start: 20180925
  6. MORPHINE [Suspect]
     Active Substance: MORPHINE
     Route: 037
     Dates: start: 20181009
  7. MORPHINE [Suspect]
     Active Substance: MORPHINE
     Dosage: WITH 20% INCREASE
     Route: 037
     Dates: start: 20180206
  8. MORPHINE [Suspect]
     Active Substance: MORPHINE
     Indication: CANCER PAIN
     Route: 037
     Dates: start: 20171229
  9. MORPHINE [Suspect]
     Active Substance: MORPHINE
     Route: 037
     Dates: start: 20180613

REACTIONS (1)
  - Arachnoiditis [Recovering/Resolving]

NARRATIVE: CASE EVENT DATE: 201810
